FAERS Safety Report 7250536-3 (Version None)
Quarter: 2011Q1

REPORT INFORMATION
  Report Type: 
  Country: None (occurrence: None)
  Receive Date: 20110128
  Receipt Date: 20110125
  Transmission Date: 20110831
  Serious: Yes (Death)
  Sender: FDA-Public Use
  Company Number: PHHY2009US66883

PATIENT
  Sex: Female

DRUGS (2)
  1. EXJADE [Suspect]
     Dosage: 500 MG, UNK
  2. CHEMOTHERAPEUTICS NOS [Concomitant]

REACTIONS (2)
  - DEATH [None]
  - KIDNEY INFECTION [None]
